FAERS Safety Report 15377324 (Version 2)
Quarter: 2019Q1

REPORT INFORMATION
  Report Type: Spontaneous
  Country: US (occurrence: US)
  Receive Date: 20180913
  Receipt Date: 20190318
  Transmission Date: 20190417
  Serious: No
  Sender: FDA-Public Use
  Company Number: US-PFIZER INC-2018128226

PATIENT
  Age: 11 Year
  Sex: Female
  Weight: 27.22 kg

DRUGS (2)
  1. GENOTROPIN MQ [Suspect]
     Active Substance: SOMATROPIN
     Indication: BODY HEIGHT BELOW NORMAL
     Dosage: 1.4 MG ON OTHER 3 DAYS AND ONE DAY OFF PER WEE
     Route: 058
     Dates: start: 201801
  2. GENOTROPIN MQ [Suspect]
     Active Substance: SOMATROPIN
     Indication: SMALL FOR DATES BABY
     Dosage: 1.6 MG UNDER THE SKIN 3 DAYS A WEEK, ALTERNATING WITH 1.4 MG ON OTHER 3 DAYS AND ONE DAY OFF PER WEE
     Route: 058
     Dates: start: 201801

REACTIONS (4)
  - Food allergy [Unknown]
  - Migraine [Unknown]
  - Abdominal pain upper [Not Recovered/Not Resolved]
  - Irritable bowel syndrome [Unknown]

NARRATIVE: CASE EVENT DATE: 201802
